FAERS Safety Report 9723010 (Version 1)
Quarter: 2013Q4

REPORT INFORMATION
  Report Type: Spontaneous
  Country: US (occurrence: None)
  Receive Date: 20131127
  Receipt Date: 20131127
  Transmission Date: 20140711
  Serious: Yes (Other)
  Sender: FDA-Public Use
  Company Number: None

PATIENT
  Age: 57 Year
  Sex: Male
  Weight: 81.65 kg

DRUGS (1)
  1. HYDROCHLOROTHIAZIDE [Suspect]
     Indication: HYPERTENSION
     Dosage: 1 ONCE DAILY TAKEN BY MOUTH

REACTIONS (6)
  - Erythema [None]
  - Ocular hyperaemia [None]
  - Heart rate increased [None]
  - Palpitations [None]
  - Complex partial seizures [None]
  - Drug hypersensitivity [None]
